FAERS Safety Report 21352484 (Version 1)
Quarter: 2022Q3

REPORT INFORMATION
  Report Type: Spontaneous
  Country: US (occurrence: US)
  Receive Date: 20220920
  Receipt Date: 20220920
  Transmission Date: 20221026
  Serious: No
  Sender: FDA-Public Use
  Company Number: US-TEVA-2022-US-2074387

PATIENT
  Sex: Female

DRUGS (3)
  1. LISINOPRIL [Suspect]
     Active Substance: LISINOPRIL
     Indication: Product used for unknown indication
     Route: 065
  2. LENVIMA [Suspect]
     Active Substance: LENVATINIB
     Indication: Endometrial cancer
     Route: 065
     Dates: end: 20200810
  3. LENVIMA [Suspect]
     Active Substance: LENVATINIB
     Dosage: 20 MILLIGRAM
     Route: 065
     Dates: start: 20220723

REACTIONS (6)
  - Hypertension [Unknown]
  - Pain [Unknown]
  - Oral pain [Unknown]
  - Oropharyngeal pain [Unknown]
  - Cough [Unknown]
  - Dysphagia [Unknown]
